FAERS Safety Report 15938508 (Version 2)
Quarter: 2020Q1

REPORT INFORMATION
  Report Type: Spontaneous
  Country: GB (occurrence: GB)
  Receive Date: 20190208
  Receipt Date: 20200116
  Transmission Date: 20200409
  Serious: Yes (Hospitalization)
  Sender: FDA-Public Use
  Company Number: GB-009507513-1902GBR000962

PATIENT
  Age: 88 Year
  Sex: Male
  Weight: 81 kg

DRUGS (4)
  1. ATENOLOL. [Concomitant]
     Active Substance: ATENOLOL
  2. AMLODIPINE [Concomitant]
     Active Substance: AMLODIPINE BESYLATE
  3. PEMBROLIZUMAB. [Suspect]
     Active Substance: PEMBROLIZUMAB
     Indication: MALIGNANT MELANOMA
     Dosage: CYCLE 4
     Route: 042
     Dates: start: 20181012
  4. BENDROFLUMETHIAZIDE [Concomitant]
     Active Substance: BENDROFLUMETHIAZIDE
     Dosage: UNK

REACTIONS (5)
  - Diarrhoea [Unknown]
  - Dyspnoea exertional [Unknown]
  - Mucous stools [Unknown]
  - Pulmonary toxicity [Recovered/Resolved]
  - Incontinence [Unknown]
